FAERS Safety Report 11737738 (Version 1)
Quarter: 2015Q4

REPORT INFORMATION
  Report Type: Spontaneous
  Country: GB (occurrence: GB)
  Receive Date: 20151113
  Receipt Date: 20151113
  Transmission Date: 20160304
  Serious: Yes (Other)
  Sender: FDA-Public Use
  Company Number: GB-TEVA-606903ACC

PATIENT
  Age: 61 Year
  Sex: Male
  Weight: 66.67 kg

DRUGS (1)
  1. METOCLOPRAMIDE. [Suspect]
     Active Substance: METOCLOPRAMIDE
     Indication: NAUSEA
     Route: 048

REACTIONS (3)
  - Hypersomnia [Recovering/Resolving]
  - Abnormal dreams [Unknown]
  - Hallucination [Unknown]
